FAERS Safety Report 17294236 (Version 2)
Quarter: 2020Q1

REPORT INFORMATION
  Report Type: Spontaneous
  Country: US (occurrence: US)
  Receive Date: 20200121
  Receipt Date: 20200313
  Transmission Date: 20200409
  Serious: No
  Sender: FDA-Public Use
  Company Number: US-GILEAD-2020-0447390

PATIENT
  Sex: Male

DRUGS (9)
  1. SUBOXONE [Concomitant]
     Active Substance: BUPRENORPHINE HYDROCHLORIDE\NALOXONE HYDROCHLORIDE
  2. FUROSEMIDE. [Concomitant]
     Active Substance: FUROSEMIDE
  3. ASPIRIN [ACETYLSALICYLIC ACID] [Concomitant]
     Active Substance: ASPIRIN
  4. LOTEMAX [Concomitant]
     Active Substance: LOTEPREDNOL ETABONATE
  5. LISINOPRIL. [Concomitant]
     Active Substance: LISINOPRIL
  6. MULTICOMP [Concomitant]
     Dosage: UNK
  7. HARVONI [Suspect]
     Active Substance: LEDIPASVIR\SOFOSBUVIR
     Indication: CHRONIC HEPATITIS C
     Dosage: 1 DOSAGE FORM, QD
     Route: 048
     Dates: start: 201911, end: 202002
  8. MULTI CAPS [Concomitant]
  9. PROLENSA [Concomitant]
     Active Substance: BROMFENAC SODIUM

REACTIONS (7)
  - Sluggishness [Recovered/Resolved]
  - Decreased appetite [Recovering/Resolving]
  - Insomnia [Recovered/Resolved]
  - Intentional dose omission [Recovered/Resolved]
  - Asthenia [Recovering/Resolving]
  - Headache [Recovered/Resolved]
  - Fatigue [Recovered/Resolved]
